FAERS Safety Report 7575490-6 (Version None)
Quarter: 2011Q2

REPORT INFORMATION
  Report Type: 
  Country: None (occurrence: None)
  Receive Date: 20110627
  Receipt Date: 20110622
  Transmission Date: 20111010
  Serious: Yes (Life-Threatening, Hospitalization, Other)
  Sender: FDA-Public Use
  Company Number: US-ASTRAZENECA-2011SE32379

PATIENT
  Age: 90 Year
  Sex: Female

DRUGS (2)
  1. NEXIUM [Suspect]
     Route: 048
  2. TOPROL-XL [Suspect]
     Route: 048

REACTIONS (20)
  - FALL [None]
  - MALAISE [None]
  - VAGINAL NEOPLASM [None]
  - OVARIAN CYST [None]
  - NEOPLASM MALIGNANT [None]
  - HERPES ZOSTER [None]
  - PAIN [None]
  - OESOPHAGEAL DISORDER [None]
  - RECTAL NEOPLASM [None]
  - PANCREATIC CARCINOMA [None]
  - VASCULAR GRAFT [None]
  - DYSPNOEA [None]
  - BREAST CYST [None]
  - HOSPITALISATION [None]
  - VISUAL ACUITY REDUCED [None]
  - APPARENT DEATH [None]
  - DIABETES MELLITUS [None]
  - COLONOSCOPY [None]
  - CARDIAC OPERATION [None]
  - LIFE SUPPORT [None]
